FAERS Safety Report 14404946 (Version 2)
Quarter: 2018Q1

REPORT INFORMATION
  Report Type: Spontaneous
  Country: SE (occurrence: SE)
  Receive Date: 20180118
  Receipt Date: 20180213
  Transmission Date: 20180509
  Serious: Yes (Other)
  Sender: FDA-Public Use
  Company Number: SE-009507513-1801SWE005549

PATIENT
  Age: 18 Year
  Sex: Female

DRUGS (1)
  1. NEXPLANON [Suspect]
     Active Substance: ETONOGESTREL
     Indication: CONTRACEPTION
     Dosage: UNK
     Route: 059
     Dates: start: 20160216

REACTIONS (9)
  - Fatigue [Unknown]
  - Nausea [Unknown]
  - Feeling abnormal [Not Recovered/Not Resolved]
  - Breast mass [Unknown]
  - Menorrhagia [Recovered/Resolved]
  - Dysmenorrhoea [Recovered/Resolved]
  - Chlamydial infection [Recovered/Resolved]
  - Mood altered [Not Recovered/Not Resolved]
  - Breast enlargement [Unknown]

NARRATIVE: CASE EVENT DATE: 201711
